FAERS Safety Report 8605851-5 (Version None)
Quarter: 2012Q3

REPORT INFORMATION
  Report Type: 
  Country: None (occurrence: None)
  Receive Date: 20120820
  Receipt Date: 20120808
  Transmission Date: 20120928
  Serious: Yes (Hospitalization, Congenital Anomaly)
  Sender: FDA-Public Use
  Company Number: US-GLAXOSMITHKLINE-A0989985A

PATIENT
  Sex: Female

DRUGS (1)
  1. PAXIL [Suspect]
     Indication: DEPRESSION
     Dosage: 20MG PER DAY
     Route: 064
     Dates: start: 19990527

REACTIONS (6)
  - CARDIOMEGALY [None]
  - VENTRICULAR SEPTAL DEFECT [None]
  - RIGHT VENTRICULAR HYPERTROPHY [None]
  - CARDIAC MURMUR [None]
  - FOETAL EXPOSURE DURING PREGNANCY [None]
  - AORTIC STENOSIS [None]
